FAERS Safety Report 19275031 (Version 1)
Quarter: 2021Q2

REPORT INFORMATION
  Report Type: Spontaneous
  Country: US (occurrence: US)
  Receive Date: 20210519
  Receipt Date: 20210519
  Transmission Date: 20210717
  Serious: Yes (Hospitalization, Other)
  Sender: FDA-Public Use
  Company Number: US-FRESENIUS KABI-FK202105051

PATIENT
  Age: 6 Year
  Sex: Male

DRUGS (7)
  1. MANNITOL. [Concomitant]
     Active Substance: MANNITOL
     Indication: RENAL DISORDER PROPHYLAXIS
     Route: 065
  2. VINCRISTINE [Suspect]
     Active Substance: VINCRISTINE
     Indication: RENAL CANCER METASTATIC
     Dosage: 3 CYCLE
     Route: 065
  3. ETOPOSIDE (MANUFACTURER UNKNOWN) [Suspect]
     Active Substance: ETOPOSIDE
     Indication: RENAL CANCER METASTATIC
     Dosage: 4 CYCLE
     Route: 065
  4. IFOSFAMIDE (MANUFACTURER UNKNOWN) [Suspect]
     Active Substance: IFOSFAMIDE
     Dosage: 3 CYCLE
     Route: 065
  5. ETOPOSIDE (MANUFACTURER UNKNOWN) [Suspect]
     Active Substance: ETOPOSIDE
     Dosage: 3 CYCLE
     Route: 065
  6. CISPLATIN (MANUFACTURER UNKNOWN) [Suspect]
     Active Substance: CISPLATIN
     Indication: RENAL CANCER METASTATIC
     Dosage: 4 CYCLE
     Route: 065
  7. IFOSFAMIDE (MANUFACTURER UNKNOWN) [Suspect]
     Active Substance: IFOSFAMIDE
     Indication: RENAL CANCER METASTATIC
     Dosage: 4 CYCLE
     Route: 065

REACTIONS (2)
  - Febrile neutropenia [Unknown]
  - Acute kidney injury [Unknown]
